FAERS Safety Report 7028557-5 (Version None)
Quarter: 2010Q4

REPORT INFORMATION
  Report Type: 
  Country: None (occurrence: None)
  Receive Date: 20101005
  Receipt Date: 20100930
  Transmission Date: 20110411
  Serious: Yes (Hospitalization)
  Sender: FDA-Public Use
  Company Number: CH-SANOFI-AVENTIS-2010SA058955

PATIENT
  Age: 42 Year
  Sex: Female

DRUGS (8)
  1. LASIX [Suspect]
     Indication: OEDEMA
     Route: 040
     Dates: start: 20100914, end: 20100915
  2. METHADONE [Suspect]
     Indication: PRODUCT USED FOR UNKNOWN INDICATION
     Route: 048
     Dates: start: 20100910, end: 20100915
  3. TRUXAL [Concomitant]
     Route: 048
     Dates: start: 20100909
  4. LAXOBERON [Concomitant]
     Route: 048
     Dates: start: 20100909
  5. LYRICA [Concomitant]
     Dosage: LONG TERM
     Route: 048
  6. TRAZODONE HCL [Concomitant]
     Dosage: LONG TERM
     Route: 048
  7. LIDOCAINE HYDROCHLORIDE [Concomitant]
     Route: 061
     Dates: start: 20100914, end: 20100927
  8. SODIUM PHOSPHATE DIBASIC/SODIUM PHOSPHATE MONOBASIC [Concomitant]
     Route: 054
     Dates: start: 20100906

REACTIONS (6)
  - DRUG RASH WITH EOSINOPHILIA AND SYSTEMIC SYMPTOMS [None]
  - DYSPNOEA [None]
  - INTERSTITIAL LUNG DISEASE [None]
  - OEDEMA [None]
  - RASH [None]
  - SYSTEMIC INFLAMMATORY RESPONSE SYNDROME [None]
